FAERS Safety Report 8081626-3 (Version None)
Quarter: 2012Q1

REPORT INFORMATION
  Report Type: 
  Country: None (occurrence: None)
  Receive Date: 20120130
  Receipt Date: 20091111
  Transmission Date: 20120608
  Serious: Yes (Hospitalization, Other)
  Sender: FDA-Public Use
  Company Number: US-PFIZER INC-2010054353

PATIENT
  Sex: Male
  Weight: 93 kg

DRUGS (15)
  1. REOPRO [Concomitant]
  2. VERSED [Concomitant]
  3. LIPITOR [Concomitant]
  4. PLAVIX [Concomitant]
  5. CYPHER STENT [Suspect]
     Indication: ACUTE MYOCARDIAL INFARCTION
     Dosage: UNK
     Route: 022
     Dates: start: 20040202
  6. COREG [Concomitant]
  7. VIREAD [Concomitant]
  8. ACETYLSALICYLIC ACID [Concomitant]
  9. FENTANYL [Concomitant]
  10. VALIUM [Concomitant]
  11. BENADRYL [Concomitant]
  12. HEPARIN [Concomitant]
  13. LYRICA [Suspect]
     Dosage: UNK
     Dates: start: 20060701
  14. NITROGLYCERIN ^DAK^ [Concomitant]
  15. ZERIT [Concomitant]

REACTIONS (16)
  - CONSTIPATION [None]
  - ERECTILE DYSFUNCTION [None]
  - ARTHRALGIA [None]
  - DYSPNOEA [None]
  - THROMBOSIS IN DEVICE [None]
  - EJACULATION DISORDER [None]
  - SINUS CONGESTION [None]
  - DIZZINESS [None]
  - ATRIAL FLUTTER [None]
  - COUGH [None]
  - PALPITATIONS [None]
  - NASOPHARYNGITIS [None]
  - MYOCARDIAL INFARCTION [None]
  - PARAESTHESIA [None]
  - PAIN IN EXTREMITY [None]
  - DEVICE MALFUNCTION [None]
